APPROVED DRUG PRODUCT: VIVELLE
Active Ingredient: ESTRADIOL
Strength: 0.025MG/24HR
Dosage Form/Route: SYSTEM;TRANSDERMAL
Application: N020323 | Product #005
Applicant: SANDOZ INC
Approved: Aug 16, 2000 | RLD: No | RS: No | Type: DISCN